FAERS Safety Report 17849593 (Version 1)
Quarter: 2020Q2

REPORT INFORMATION
  Report Type: Spontaneous
  Country: US (occurrence: US)
  Receive Date: 20200601
  Receipt Date: 20200601
  Transmission Date: 20200714
  Serious: Yes (Hospitalization)
  Sender: FDA-Public Use
  Company Number: None

PATIENT
  Age: 63 Year
  Sex: Female

DRUGS (2)
  1. MYCOPHENOLATE 500MG [Suspect]
     Active Substance: MYCOPHENOLIC ACID
     Indication: TRANSPLANT
     Dosage: ?          OTHER FREQUENCY:2 QAM;?
     Route: 048
     Dates: start: 20200113
  2. ENVARSUS XR [Concomitant]
     Active Substance: TACROLIMUS

REACTIONS (1)
  - Pneumonia [None]
